FAERS Safety Report 5422625-7 (Version None)
Quarter: 2007Q3

REPORT INFORMATION
  Report Type: 
  Country: None (occurrence: None)
  Receive Date: 20070820
  Receipt Date: 20070808
  Transmission Date: 20080115
  Serious: Yes (Congenital Anomaly)
  Sender: FDA-Public Use
  Company Number: 8025785

PATIENT
  Sex: Male

DRUGS (2)
  1. LEVETIRACETAM [Suspect]
     Indication: EPILEPSY
     Dosage: TRP
  2. FOLIC ACID [Concomitant]

REACTIONS (2)
  - CRYPTORCHISM [None]
  - DRUG EXPOSURE DURING PREGNANCY [None]
